FAERS Safety Report 14065413 (Version 1)
Quarter: 2017Q4

REPORT INFORMATION
  Report Type: Report from Study
  Country: US (occurrence: US)
  Receive Date: 20171009
  Receipt Date: 20171009
  Transmission Date: 20180321
  Serious: No
  Sender: FDA-Public Use
  Company Number: US-AMGEN-USASL2017070810

PATIENT
  Age: 84 Year
  Sex: Female
  Weight: 76.19 kg

DRUGS (18)
  1. PROLIA [Suspect]
     Active Substance: DENOSUMAB
     Indication: OSTEOPOROSIS
     Dosage: 60 MG, Q6MO
     Route: 058
     Dates: start: 20170504
  2. CRANBERRY EXTRACT [Concomitant]
     Active Substance: CRANBERRY JUICE
     Dosage: 300 MG, QD
     Route: 048
     Dates: start: 20160503
  3. ONGLYZA [Concomitant]
     Active Substance: SAXAGLIPTIN HYDROCHLORIDE
     Dosage: 5 MG, QD
     Dates: start: 20170401
  4. SPIRONOLACTONE. [Concomitant]
     Active Substance: SPIRONOLACTONE
     Dosage: 50 MG, QD
     Route: 048
     Dates: start: 20170317
  5. HUMALOG MIX [Concomitant]
     Active Substance: INSULIN LISPRO
     Dosage: 25 UNIT, QD
     Route: 058
     Dates: start: 20170320
  6. MAGNESIUM OXIDE. [Concomitant]
     Active Substance: MAGNESIUM OXIDE
     Dosage: 400 MG, QD
     Dates: start: 20160503
  7. ATORVASTATIN [Concomitant]
     Active Substance: ATORVASTATIN
     Dosage: 10 MG, QD
     Route: 048
     Dates: start: 20170401
  8. CALTRATE WITH VITAMIN D [Concomitant]
     Active Substance: CALCIUM CARBONATE\CHOLECALCIFEROL
     Dosage: 1 DF, QD
     Route: 048
     Dates: start: 20160503
  9. TRAMADOL. [Concomitant]
     Active Substance: TRAMADOL
     Indication: PAIN
     Dosage: 50 MG, BID (AS NECESSARY)
     Route: 048
     Dates: start: 20160629
  10. PROLIA [Suspect]
     Active Substance: DENOSUMAB
     Indication: OSTEOPENIA
  11. CALCIUM [Concomitant]
     Active Substance: CALCIUM
  12. ALPHA LIPOIC ACID [Concomitant]
     Active Substance: .ALPHA.-LIPOIC ACID
     Dosage: 600 MG, QD
     Route: 048
     Dates: start: 20160503
  13. AMOXICILLIN. [Concomitant]
     Active Substance: AMOXICILLIN
     Dosage: 500 MG, AS NECESSARY
     Dates: start: 20170127
  14. NADOLOL. [Concomitant]
     Active Substance: NADOLOL
     Dosage: 40 MG, QD
     Route: 048
     Dates: start: 20170318
  15. VITAMIN D3 [Concomitant]
     Active Substance: CHOLECALCIFEROL
     Dosage: 2000 UNIT, QD
     Route: 048
     Dates: start: 20160503
  16. PROLIA [Suspect]
     Active Substance: DENOSUMAB
     Indication: BONE DISORDER
  17. VITAMIN D [Concomitant]
     Active Substance: CHOLECALCIFEROL
  18. FUROSEMIDE. [Concomitant]
     Active Substance: FUROSEMIDE
     Dosage: 20 MG, QD
     Route: 048
     Dates: start: 20170317

REACTIONS (1)
  - Off label use [Unknown]
